FAERS Safety Report 8143802-0 (Version None)
Quarter: 2012Q1

REPORT INFORMATION
  Report Type: 
  Country: None (occurrence: None)
  Receive Date: 20120217
  Receipt Date: 20120206
  Transmission Date: 20120608
  Serious: Yes (Death, Hospitalization)
  Sender: FDA-Public Use
  Company Number: US-JNJFOC-20120204673

PATIENT
  Sex: Male
  Weight: 90.72 kg

DRUGS (2)
  1. REMICADE [Suspect]
     Indication: ARTHRITIS
     Route: 042
  2. REMICADE [Suspect]
     Route: 042

REACTIONS (5)
  - GENERAL PHYSICAL HEALTH DETERIORATION [None]
  - PNEUMONIA [None]
  - BLOOD DISORDER [None]
  - LOCALISED INFECTION [None]
  - ASTHENIA [None]
